FAERS Safety Report 4638667-5 (Version None)
Quarter: 2005Q2

REPORT INFORMATION
  Report Type: 
  Country: None (occurrence: None)
  Receive Date: 20050415
  Receipt Date: 20050415
  Transmission Date: 20051028
  Serious: Yes (Hospitalization)
  Sender: FDA-Public Use
  Company Number: None

PATIENT
  Age: 46 Year
  Sex: Female

DRUGS (2)
  1. METOPROLOL TARTRATE [Suspect]
  2. QUETIAPINE FUMARATE [Suspect]

REACTIONS (3)
  - BODY TEMPERATURE DECREASED [None]
  - HEART RATE DECREASED [None]
  - HYPOTENSION [None]
